FAERS Safety Report 10563189 (Version 1)
Quarter: 2014Q4

REPORT INFORMATION
  Report Type: Spontaneous
  Country: DE (occurrence: DE)
  Receive Date: 20141104
  Receipt Date: 20141104
  Transmission Date: 20150529
  Serious: Yes (Hospitalization, Other)
  Sender: FDA-Public Use
  Company Number: DE-JNJFOC-20141021273

PATIENT
  Age: 41 Year
  Sex: Female
  Weight: 60 kg

DRUGS (1)
  1. RISPERDAL [Suspect]
     Active Substance: RISPERIDONE
     Indication: PRODUCT USED FOR UNKNOWN INDICATION
     Route: 048
     Dates: start: 20141030, end: 20141030

REACTIONS (6)
  - Intentional overdose [Unknown]
  - Suicide attempt [Unknown]
  - Fatigue [Unknown]
  - Electrocardiogram QT prolonged [Unknown]
  - Somnolence [Unknown]
  - Tachycardia [Unknown]

NARRATIVE: CASE EVENT DATE: 20141030
